FAERS Safety Report 9034756 (Version 2)
Quarter: 2013Q1

REPORT INFORMATION
  Report Type: Spontaneous
  Country: KR (occurrence: None)
  Receive Date: 20130110
  Receipt Date: 20130116
  Transmission Date: 20140127
  Serious: Yes (Hospitalization)
  Sender: FDA-Public Use
  Company Number: DSA_61766_2013

PATIENT
  Age: 76 Year
  Sex: Female

DRUGS (1)
  1. METRONIDAZOLE (METRONIDAZOLE) [Suspect]
     Indication: LIVER ABSCESS
     Route: 048

REACTIONS (4)
  - Encephalopathy [None]
  - Dysarthria [None]
  - Cytotoxic oedema [None]
  - Central nervous system lesion [None]
